FAERS Safety Report 20170944 (Version 4)
Quarter: 2022Q2

REPORT INFORMATION
  Report Type: Spontaneous
  Country: US (occurrence: None)
  Receive Date: 20211210
  Receipt Date: 20220607
  Transmission Date: 20220721
  Serious: Yes (Other)
  Sender: FDA-Public Use
  Company Number: 2021A854968

PATIENT
  Age: 54 Year
  Sex: Male
  Weight: 99.8 kg

DRUGS (68)
  1. NEXIUM [Suspect]
     Active Substance: ESOMEPRAZOLE MAGNESIUM
     Indication: Gastrooesophageal reflux disease
     Route: 048
     Dates: start: 2006, end: 2020
  2. NEXIUM [Suspect]
     Active Substance: ESOMEPRAZOLE MAGNESIUM
     Indication: Gastrooesophageal reflux disease
     Route: 048
     Dates: start: 20060101, end: 20181231
  3. NEXIUM 24HR [Suspect]
     Active Substance: ESOMEPRAZOLE MAGNESIUM
     Indication: Gastrooesophageal reflux disease
     Route: 048
     Dates: start: 2006, end: 2020
  4. NEXIUM 24HR [Suspect]
     Active Substance: ESOMEPRAZOLE MAGNESIUM
     Indication: Gastrooesophageal reflux disease
     Route: 048
     Dates: start: 20150101, end: 20151231
  5. PRILOSEC [Suspect]
     Active Substance: OMEPRAZOLE MAGNESIUM
     Indication: Gastrooesophageal reflux disease
     Route: 048
     Dates: start: 2006, end: 2020
  6. PRILOSEC [Suspect]
     Active Substance: OMEPRAZOLE MAGNESIUM
     Indication: Gastrooesophageal reflux disease
     Route: 048
     Dates: start: 20120201, end: 2020
  7. PRILOSEC [Suspect]
     Active Substance: OMEPRAZOLE MAGNESIUM
     Indication: Gastrooesophageal reflux disease
     Dosage: GENERIC
     Route: 048
     Dates: start: 2012, end: 2020
  8. PREVACID 24 HR [Suspect]
     Active Substance: LANSOPRAZOLE
     Indication: Gastrooesophageal reflux disease
     Route: 065
     Dates: start: 2006, end: 2020
  9. PREVACID 24 HR [Suspect]
     Active Substance: LANSOPRAZOLE
     Indication: Gastrooesophageal reflux disease
     Route: 065
     Dates: start: 20090501, end: 20101231
  10. PROTONIX [Suspect]
     Active Substance: PANTOPRAZOLE SODIUM
     Indication: Gastrooesophageal reflux disease
     Route: 065
     Dates: start: 2006, end: 2020
  11. PROTONIX [Suspect]
     Active Substance: PANTOPRAZOLE SODIUM
     Indication: Gastrooesophageal reflux disease
     Route: 065
     Dates: start: 20140927, end: 20190831
  12. PROTONIX [Suspect]
     Active Substance: PANTOPRAZOLE SODIUM
     Indication: Gastrooesophageal reflux disease
     Route: 065
     Dates: start: 2013, end: 2020
  13. XARELTO [Concomitant]
     Active Substance: RIVAROXABAN
  14. ATENOLOL [Concomitant]
     Active Substance: ATENOLOL
  15. KAYEXALATE [Concomitant]
     Active Substance: SODIUM POLYSTYRENE SULFONATE
  16. ELIQUIS [Concomitant]
     Active Substance: APIXABAN
  17. BACLOFEN [Concomitant]
     Active Substance: BACLOFEN
  18. FENOFIBRATE [Concomitant]
     Active Substance: FENOFIBRATE
  19. CALCIUM ACTEATE [Concomitant]
  20. CHOLECALCIFEROL [Concomitant]
     Active Substance: CHOLECALCIFEROL
  21. ROSUVASTATIN [Concomitant]
     Active Substance: ROSUVASTATIN
     Indication: Hyperlipidaemia
  22. HYDRALAZINE [Concomitant]
     Active Substance: HYDRALAZINE HYDROCHLORIDE
     Indication: Hypertension
  23. AMLODIPINE [Concomitant]
     Active Substance: AMLODIPINE BESYLATE
  24. LISINOPRIL [Concomitant]
     Active Substance: LISINOPRIL
     Indication: Hypertension
  25. CITRIC ACID [Concomitant]
     Active Substance: CITRIC ACID MONOHYDRATE
  26. SODIUM CITRATE [Concomitant]
     Active Substance: SODIUM CITRATE
  27. DIVALPROEX SODIUM [Concomitant]
     Active Substance: DIVALPROEX SODIUM
  28. SODIUM FLUORIDE\STANNOUS FLUORIDE [Concomitant]
     Active Substance: SODIUM FLUORIDE\STANNOUS FLUORIDE
  29. MENTHOL [Concomitant]
     Active Substance: MENTHOL
  30. METHL SALICYLATE [Concomitant]
  31. METOPROLOL TARTRATE [Concomitant]
     Active Substance: METOPROLOL TARTRATE
  32. ACETAMINOPHEN [Concomitant]
     Active Substance: ACETAMINOPHEN
  33. ROPINIROLE [Concomitant]
     Active Substance: ROPINIROLE
  34. CARDIZEM [Concomitant]
     Active Substance: DILTIAZEM HYDROCHLORIDE
  35. SODIUM BICARBONATE [Concomitant]
     Active Substance: SODIUM BICARBONATE
  36. DUONEB [Concomitant]
     Active Substance: ALBUTEROL SULFATE\IPRATROPIUM BROMIDE
  37. HEPARIN [Concomitant]
     Active Substance: HEPARIN SODIUM
  38. SODIUM CHLORIDE [Concomitant]
     Active Substance: SODIUM CHLORIDE
  39. FENTANYL [Concomitant]
     Active Substance: FENTANYL
  40. PHENYLEPHRINE [Concomitant]
     Active Substance: PHENYLEPHRINE HYDROCHLORIDE
  41. CYCLOBENZAPRINE [Concomitant]
     Active Substance: CYCLOBENZAPRINE
  42. ACETAMINOPHEN/ BUTALBITAL/ CAFFEINE [Concomitant]
  43. VITAMINS [Concomitant]
     Active Substance: VITAMINS
  44. CLONAZEPAM [Concomitant]
     Active Substance: CLONAZEPAM
  45. LATANOPROST [Concomitant]
     Active Substance: LATANOPROST
  46. SUCROFERRIC OXYHYDROXIDE [Concomitant]
     Active Substance: SUCROFERRIC OXYHYDROXIDE
  47. BRIMONIDINE OPHTHALMIC [Concomitant]
  48. LACTOBACILLUS ACIDOPHILUS [Concomitant]
     Active Substance: LACTOBACILLUS ACIDOPHILUS
  49. CEFAZOLIN [Concomitant]
     Active Substance: CEFAZOLIN
  50. NITROGLYCERIN [Concomitant]
     Active Substance: NITROGLYCERIN
  51. MORPHINE [Concomitant]
     Active Substance: MORPHINE
  52. PROTAMINE [Concomitant]
     Active Substance: PROTAMINE
  53. AMBIEN [Concomitant]
     Active Substance: ZOLPIDEM TARTRATE
  54. FAMOTIDINE [Concomitant]
     Active Substance: FAMOTIDINE
  55. PROPOFOL [Concomitant]
     Active Substance: PROPOFOL
  56. MIDAZOLAM [Concomitant]
     Active Substance: MIDAZOLAM
  57. ONDANSETRON [Concomitant]
     Active Substance: ONDANSETRON
  58. EPOGEN [Concomitant]
     Active Substance: ERYTHROPOIETIN
  59. LIDOCAINE [Concomitant]
     Active Substance: LIDOCAINE
  60. VANCOMYCIN [Concomitant]
     Active Substance: VANCOMYCIN
  61. ACETAMINOPHEN\HYDROCODONE [Concomitant]
     Active Substance: ACETAMINOPHEN\HYDROCODONE
  62. PENICILLIN [Concomitant]
     Active Substance: PENICILLIN
  63. OMEGA-3 ACIDS [Concomitant]
     Active Substance: OMEGA-3 FATTY ACIDS
  64. DOXYCYCLINE [Concomitant]
     Active Substance: DOXYCYCLINE
     Indication: Infection
  65. AMOXICILLIN [Concomitant]
     Active Substance: AMOXICILLIN
     Indication: Infection
  66. AZITHROMYCIN [Concomitant]
     Active Substance: AZITHROMYCIN
     Indication: Infection
  67. FUROSEMIDE [Concomitant]
     Active Substance: FUROSEMIDE
     Indication: Hypertension
  68. CLOPIDOGREL [Concomitant]
     Active Substance: CLOPIDOGREL BISULFATE
     Indication: Hypertension

REACTIONS (7)
  - Acute kidney injury [Not Recovered/Not Resolved]
  - Chronic kidney disease [Not Recovered/Not Resolved]
  - End stage renal disease [Not Recovered/Not Resolved]
  - Renal failure [Unknown]
  - Nephrogenic anaemia [Unknown]
  - Hyperkalaemia [Unknown]
  - Renal impairment [Unknown]

NARRATIVE: CASE EVENT DATE: 20140101
